FAERS Safety Report 7418633-7 (Version None)
Quarter: 2011Q2

REPORT INFORMATION
  Report Type: 
  Country: None (occurrence: None)
  Receive Date: 20110415
  Receipt Date: 20110224
  Transmission Date: 20111010
  Serious: Yes (Hospitalization, Other)
  Sender: FDA-Public Use
  Company Number: US-BAYER-2011-007932

PATIENT
  Age: 38 Year
  Sex: Female

DRUGS (23)
  1. CEPHALEXIN [Concomitant]
     Dosage: 500 MG, 28 DAY SUPPLY
     Route: 048
     Dates: start: 19800101
  2. LANTUS [Concomitant]
     Dosage: 100 UNITS/10 ML
     Route: 058
  3. PLAVIX [Concomitant]
     Dosage: 75 MG, UNK
     Route: 048
     Dates: start: 20090207
  4. TRAMADOL HCL CF [Concomitant]
     Dosage: 50 MG, UNK
     Route: 048
  5. GLIPIZIDE [Concomitant]
     Dosage: 10 MG, UNK
     Route: 048
     Dates: start: 20070207
  6. CLONAZEPAM [Concomitant]
     Dosage: 1 MG, UNK
     Route: 048
  7. YAZ [Suspect]
     Indication: ACNE
     Dosage: UNK UNK, QD
     Dates: start: 20040101, end: 20090305
  8. YAZ [Suspect]
     Indication: PREMENSTRUAL SYNDROME
  9. YASMIN [Suspect]
     Indication: PREMENSTRUAL SYNDROME
  10. METOPROLOL [Concomitant]
     Dosage: UNK
     Route: 048
     Dates: start: 20090207
  11. BUSPIRONE [Concomitant]
     Dosage: 15 MG, UNK
     Route: 048
  12. LIPITOR [Concomitant]
     Dosage: 10 MG, UNK
     Route: 048
  13. YASMIN [Suspect]
     Indication: ACNE
     Dosage: UNK UNK, QD
     Dates: start: 20040101, end: 20090305
  14. AMBIEN [Concomitant]
     Dosage: 10 MG, UNK
     Route: 048
  15. HUMALOG [Concomitant]
     Dosage: 100 UNITS/10 ML
     Route: 058
  16. PROPOXYPHENE HCL AND ACETAMINOPHEN [Concomitant]
     Dosage: 1 TABLET
  17. METFORMIN HCL [Concomitant]
     Dosage: 500 MG, UNK
     Route: 048
     Dates: start: 20080103
  18. LISINOPRIL [Concomitant]
     Dosage: 20 MG, UNK
     Route: 048
     Dates: start: 20090207
  19. CYMBALTA [Concomitant]
     Dosage: 60 MG, UNK
     Route: 048
  20. OCELLA [Suspect]
     Indication: ACNE
     Dosage: UNK UNK, QD
     Dates: start: 20040101, end: 20090305
  21. OCELLA [Suspect]
     Indication: PREMENSTRUAL SYNDROME
  22. ASPIRIN [Concomitant]
     Dosage: 81 MG, UNK
     Route: 048
     Dates: start: 20090207
  23. AMOXICILLIN AND CLAVULANATE POTASSIUM [Concomitant]
     Dosage: 875-25 MG
     Route: 048

REACTIONS (5)
  - PAIN [None]
  - INJURY [None]
  - APHASIA [None]
  - CEREBROVASCULAR ACCIDENT [None]
  - HEMIPLEGIA [None]
